FAERS Safety Report 8842565 (Version 1)
Quarter: 2012Q4

REPORT INFORMATION
  Report Type: 
  Country: US (occurrence: US)
  Receive Date: 20121016
  Receipt Date: 20121016
  Transmission Date: 20130627
  Serious: Yes (Other)
  Sender: FDA-Public Use
  Company Number: US-ROCHE-1120242

PATIENT
  Sex: Male

DRUGS (4)
  1. NUTROPIN AQ [Suspect]
     Indication: RENAL FAILURE CHRONIC
     Route: 050
  2. NUTROPIN AQ [Suspect]
     Indication: AZOTAEMIA
  3. NUTROPIN [Suspect]
     Indication: RENAL FAILURE CHRONIC
     Route: 050
  4. NUTROPIN [Suspect]
     Indication: AZOTAEMIA

REACTIONS (1)
  - Headache [Unknown]
